FAERS Safety Report 8605899 (Version 6)
Quarter: 2013Q4

REPORT INFORMATION
  Report Type: Report from Study
  Country: JP (occurrence: JP)
  Receive Date: 20120608
  Receipt Date: 20131227
  Transmission Date: 20140711
  Serious: Yes (Other)
  Sender: FDA-Public Use
  Company Number: JP-VERTEX PHARMACEUTICALS INC.-AE-2012-008318

PATIENT
  Age: 65 Year
  Sex: Male

DRUGS (26)
  1. VX-950 (TELAPREVIR) [Suspect]
     Indication: CHRONIC HEPATITIS C
     Dosage: 2250 MG, QD
     Route: 048
     Dates: start: 20120214, end: 20120416
  2. VX-950 (TELAPREVIR) [Suspect]
     Dosage: 1500 MG, QD
     Route: 048
     Dates: start: 20120417, end: 20120505
  3. REBETOL [Suspect]
     Indication: CHRONIC HEPATITIS C
     Dosage: 800 MG, QD
     Route: 048
     Dates: start: 20120214, end: 20120410
  4. REBETOL [Suspect]
     Dosage: 600 MG, QD
     Route: 048
     Dates: start: 20120411, end: 20120424
  5. REBETOL [Suspect]
     Dosage: 400 MG, QD
     Route: 048
     Dates: start: 20120425, end: 20120702
  6. REBETOL [Suspect]
     Dosage: 600 MG, QD
     Route: 048
     Dates: start: 20120703
  7. PEGINTERFERON ALFA-2B [Suspect]
     Indication: CHRONIC HEPATITIS C
     Dosage: 1.5 ?G/KG, QW
     Route: 058
     Dates: start: 20120214
  8. GLUCOBAY [Concomitant]
     Dosage: 150 MG, QD
     Route: 048
  9. GLUFAST [Concomitant]
     Dosage: 30 MG, QD
     Route: 048
  10. GLUFAST [Concomitant]
     Dosage: UNK
  11. MAGNESIUM OXIDE [Concomitant]
     Dosage: 1 G, QD
     Route: 048
  12. MAGNESIUM OXIDE [Concomitant]
     Dosage: 1 G, QD
     Route: 048
  13. LAC-B [Concomitant]
     Dosage: 3 G, QD
     Route: 048
  14. LAC-B [Concomitant]
     Dosage: 3 G, QD
     Route: 048
  15. EXCELASE [Concomitant]
     Dosage: 3 DF, QD
     Route: 048
  16. EXCELASE [Concomitant]
     Dosage: 3 DF, QD
     Route: 048
  17. HERBESSER R [Concomitant]
     Dosage: 100 MG, QD
     Route: 048
  18. LANTUS INJ SOLOSTAR [Concomitant]
     Dosage: 20 U/DAY
     Route: 058
  19. MAALOX [Concomitant]
     Dosage: UNK UNK, PRN
     Route: 048
  20. MAALOX [Concomitant]
     Dosage: UNK UNK, PRN
     Route: 048
  21. LANSOPRAZOLE [Concomitant]
     Dosage: 15 MG, QD
     Route: 048
  22. LANSOPRAZOLE [Concomitant]
     Dosage: 15 MG, QD
     Route: 048
  23. BAYASPIRIN [Concomitant]
     Dosage: 100 MG, QD
     Route: 048
  24. GASPORT [Concomitant]
     Dosage: 40 MG, QD
     Route: 048
     Dates: start: 20120417, end: 20120508
  25. CONFATANIN [Concomitant]
     Dosage: UNK UNK, PRN
     Route: 048
     Dates: start: 20120222, end: 20120228
  26. JANUVIA [Concomitant]
     Dosage: 50 MG, QD
     Route: 048

REACTIONS (3)
  - Rash [Recovered/Resolved]
  - Haemoglobin decreased [Not Recovered/Not Resolved]
  - Platelet count decreased [Not Recovered/Not Resolved]
